FAERS Safety Report 21726272 (Version 1)
Quarter: 2022Q4

REPORT INFORMATION
  Report Type: Spontaneous
  Country: US (occurrence: US)
  Receive Date: 20221214
  Receipt Date: 20221214
  Transmission Date: 20230113
  Serious: No
  Sender: FDA-Public Use
  Company Number: US-JNJFOC-20221214959

PATIENT
  Age: 84 Year

DRUGS (1)
  1. IMODIUM [Suspect]
     Active Substance: LOPERAMIDE HYDROCHLORIDE
     Indication: Product used for unknown indication
     Dosage: WOULD LIKE TO BE ABLE TO BUY 100 OR MORE IMODIUM IN A BOTTLE
     Route: 065

REACTIONS (2)
  - Incorrect product administration duration [Unknown]
  - Product availability issue [Unknown]
